FAERS Safety Report 17258750 (Version 6)
Quarter: 2020Q2

REPORT INFORMATION
  Report Type: Report from Study
  Country: US (occurrence: US)
  Receive Date: 20200110
  Receipt Date: 20200519
  Transmission Date: 20200713
  Serious: Yes (Death, Hospitalization)
  Sender: FDA-Public Use
  Company Number: US-ACTELION-A-NJ2019-192699

PATIENT
  Age: 45 Year
  Sex: Female
  Weight: 95.24 kg

DRUGS (5)
  1. VELETRI [Suspect]
     Active Substance: EPOPROSTENOL
     Dosage: UNK
     Route: 042
  2. VELETRI [Suspect]
     Active Substance: EPOPROSTENOL
     Indication: PULMONARY ARTERIAL HYPERTENSION
     Dosage: 67.5 NG/KG, PER MIN
     Route: 042
  3. OXYGEN. [Concomitant]
     Active Substance: OXYGEN
  4. OPSUMIT [Suspect]
     Active Substance: MACITENTAN
     Indication: PULMONARY ARTERIAL HYPERTENSION
     Dosage: UNK
     Route: 048
     Dates: start: 20160713, end: 201909
  5. VELETRI [Suspect]
     Active Substance: EPOPROSTENOL
     Dosage: 78.5 NG/KG, PER MIN
     Route: 042

REACTIONS (11)
  - Death [Fatal]
  - Bronchial artery embolisation [Unknown]
  - Acute respiratory failure [Unknown]
  - Disease progression [Not Recovered/Not Resolved]
  - Chest pain [Unknown]
  - Pulmonary mass [Unknown]
  - Condition aggravated [Not Recovered/Not Resolved]
  - Thrombosis [Recovered/Resolved]
  - Pulmonary thrombosis [Recovered/Resolved]
  - Pulmonary hypertension [Unknown]
  - Haemoptysis [Recovered/Resolved]

NARRATIVE: CASE EVENT DATE: 20190613
